FAERS Safety Report 12305666 (Version 1)
Quarter: 2016Q2

REPORT INFORMATION
  Report Type: Spontaneous
  Country: FR (occurrence: FR)
  Receive Date: 20160426
  Receipt Date: 20160426
  Transmission Date: 20160815
  Serious: Yes (Other)
  Sender: FDA-Public Use
  Company Number: FR-TEVA-653937ISR

PATIENT
  Sex: Female

DRUGS (1)
  1. TAMOXIFENE TEVA [Suspect]
     Active Substance: TAMOXIFEN

REACTIONS (2)
  - Hot flush [Recovered/Resolved]
  - Monoplegia [Recovered/Resolved]
